FAERS Safety Report 5937252-2 (Version None)
Quarter: 2008Q4

REPORT INFORMATION
  Report Type: 
  Country: None (occurrence: None)
  Receive Date: 20081031
  Receipt Date: 20081022
  Transmission Date: 20090506
  Serious: Yes (Other)
  Sender: FDA-Public Use
  Company Number: US-JNJFOC-20081005839

PATIENT
  Age: 4 Year
  Sex: Male
  Weight: 20.87 kg

DRUGS (7)
  1. CHILDRENS TYLENOL LIQUID GRAPE SPLASH [Suspect]
     Route: 048
  2. CHILDRENS TYLENOL LIQUID GRAPE SPLASH [Suspect]
     Indication: HEADACHE
     Route: 048
  3. CHILDRENS TYLENOL LIQUID GRAPE SPLASH [Suspect]
     Indication: PYREXIA
     Route: 048
  4. ROBITUSSIN [Suspect]
     Indication: HEADACHE
  5. ROBITUSSIN [Suspect]
     Indication: PYREXIA
  6. TRIAMINIC [Suspect]
     Indication: HEADACHE
  7. CHILDRENS TYLENOL LIQUID BUBBLEGUM YUM [Concomitant]

REACTIONS (1)
  - HYPERSENSITIVITY [None]
